FAERS Safety Report 23023666 (Version 5)
Quarter: 2024Q2

REPORT INFORMATION
  Report Type: Spontaneous
  Country: US (occurrence: US)
  Receive Date: 20231003
  Receipt Date: 20240429
  Transmission Date: 20240716
  Serious: Yes (Hospitalization, Other)
  Sender: FDA-Public Use
  Company Number: US-BRISTOL-MYERS SQUIBB COMPANY-2023-139294

PATIENT
  Age: 71 Year
  Sex: Female

DRUGS (3)
  1. REVLIMID [Suspect]
     Active Substance: LENALIDOMIDE
     Indication: Plasma cell myeloma
     Dosage: TAKE 1 CAPSULE BY MOUTH AFTER EACH DIALYSIS SESSION 4 TIMES A WEEK FOR 2 WEEKS, SKIP 3RD WEEK FOR 21
     Route: 048
     Dates: start: 20230912, end: 20230919
  2. REVLIMID [Suspect]
     Active Substance: LENALIDOMIDE
     Dosage: TAKE 1 CAPSULE BY MOUTH EVERY DAY FOR 14 DAYS EVERY 3 WEEKS
     Route: 048
     Dates: end: 20230919
  3. REVLIMID [Suspect]
     Active Substance: LENALIDOMIDE
     Dates: end: 202310

REACTIONS (9)
  - Epistaxis [Unknown]
  - Oral disorder [Unknown]
  - Full blood count decreased [Unknown]
  - Off label use [Unknown]
  - Nausea [Recovered/Resolved]
  - Vomiting [Recovered/Resolved]
  - Neuropathy peripheral [Not Recovered/Not Resolved]
  - Pain [Not Recovered/Not Resolved]
  - Fatigue [Not Recovered/Not Resolved]

NARRATIVE: CASE EVENT DATE: 20230901
